FAERS Safety Report 7716285-X (Version None)
Quarter: 2011Q3

REPORT INFORMATION
  Report Type: 
  Country: None (occurrence: None)
  Receive Date: 20110829
  Receipt Date: 20110822
  Transmission Date: 20111222
  Serious: Yes (Life-Threatening, Other)
  Sender: FDA-Public Use
  Company Number: DE-JNJFOC-20110810227

PATIENT
  Sex: Female
  Weight: 76 kg

DRUGS (1)
  1. REMICADE [Suspect]
     Indication: ANKYLOSING SPONDYLITIS
     Route: 042
     Dates: start: 20110630, end: 20110812

REACTIONS (5)
  - OEDEMA [None]
  - RASH GENERALISED [None]
  - PALPITATIONS [None]
  - INFUSION RELATED REACTION [None]
  - DYSPNOEA [None]
